FAERS Safety Report 7502340-6 (Version None)
Quarter: 2011Q2

REPORT INFORMATION
  Report Type: 
  Country: None (occurrence: None)
  Receive Date: 20110525
  Receipt Date: 20110516
  Transmission Date: 20111010
  Serious: Yes (Other)
  Sender: FDA-Public Use
  Company Number: US-ELI_LILLY_AND_COMPANY-US201104003580

PATIENT
  Sex: Male
  Weight: 124 kg

DRUGS (10)
  1. CADUET [Concomitant]
  2. EFFIENT [Suspect]
     Indication: STENT PLACEMENT
     Dosage: 10 MG, QD
     Route: 048
     Dates: start: 20110408, end: 20110410
  3. METFORMIN HYDROCHLORIDE [Concomitant]
  4. ASPIRIN [Concomitant]
     Dosage: 325 MG, UNK
  5. GLIMEPIRIDE [Concomitant]
  6. RAMIPRIL [Concomitant]
     Dosage: 10 MG, UNK
  7. HUMALOG [Concomitant]
  8. COREG [Concomitant]
     Dosage: UNK
  9. FISH OIL [Concomitant]
  10. HYDROCHLOROTHIAZIDE [Concomitant]
     Dosage: 50 UG, UNK

REACTIONS (3)
  - URINARY BLADDER HAEMORRHAGE [None]
  - BLADDER NEOPLASM [None]
  - CYSTITIS [None]
